FAERS Safety Report 22082697 (Version 1)
Quarter: 2023Q1

REPORT INFORMATION
  Report Type: Spontaneous
  Country: SA (occurrence: SA)
  Receive Date: 20230310
  Receipt Date: 20230310
  Transmission Date: 20230418
  Serious: Yes (Hospitalization, Other)
  Sender: FDA-Public Use
  Company Number: SA-ALKEM LABORATORIES LIMITED-SA-ALKEM-2023-02709

PATIENT
  Age: 8 Year
  Sex: Male
  Weight: 20.7 kg

DRUGS (4)
  1. PIPERACILLIN SODIUM\TAZOBACTAM SODIUM [Interacting]
     Active Substance: PIPERACILLIN SODIUM\TAZOBACTAM SODIUM
     Indication: Febrile neutropenia
     Dosage: 400 MILLIGRAM/KILOGRAM, QD
     Route: 065
  2. VANCOMYCIN [Interacting]
     Active Substance: VANCOMYCIN
     Indication: Pyrexia
     Dosage: 60 MILLIGRAM/KILOGRAM, QD
     Route: 065
  3. VANCOMYCIN [Interacting]
     Active Substance: VANCOMYCIN
     Indication: Mucosal inflammation
  4. GENTAMICIN [Suspect]
     Active Substance: GENTAMICIN
     Indication: Febrile neutropenia
     Dosage: 7.5 MILLIGRAM/KILOGRAM, QD
     Route: 065

REACTIONS (3)
  - Acute kidney injury [Recovered/Resolved]
  - Drug level increased [Recovered/Resolved]
  - Drug interaction [Unknown]
